FAERS Safety Report 9288785 (Version 3)
Quarter: 2013Q4

REPORT INFORMATION
  Report Type: Spontaneous
  Country: US (occurrence: None)
  Receive Date: 20130509
  Receipt Date: 20131127
  Transmission Date: 20140711
  Serious: Yes (Hospitalization, Other)
  Sender: FDA-Public Use
  Company Number: 2012-003711

PATIENT
  Age: 59 Year
  Sex: Female
  Weight: 51.7 kg

DRUGS (16)
  1. ACTONEL (RISEDRONATE SODIUM) TABLET, 35MG [Suspect]
     Indication: OSTEOPOROSIS
     Route: 048
     Dates: start: 200204, end: 20101105
  2. ACTONEL (RISEDRONATE SODIUM) TABLET, 35MG [Suspect]
     Indication: OSTEOPOROSIS PROPHYLAXIS
     Route: 048
     Dates: start: 200204, end: 20101105
  3. FOSAMAX (ALENDRONATE SODIUM) [Suspect]
     Indication: OSTEOPOROSIS
     Dates: start: 1995, end: 199705
  4. FOSAMAX (ALENDRONATE SODIUM) [Suspect]
     Indication: OSTEOPOROSIS PROPHYLAXIS
     Dates: start: 1995, end: 199705
  5. ESTRACE (ESTRADIOL) [Concomitant]
  6. SYNTHROID (LEVOTHYROXINE SODIUM) [Concomitant]
  7. LOMOTIL (ATROPINE SULFATE, DIPHENOXYLATE HYDROCHLORIDE) [Concomitant]
  8. IMODIUM (LOPERAMIDE HYDROCHLORIDE) [Concomitant]
  9. PREVACID (LANSOPRAZOLE) [Concomitant]
  10. ACIDOPHILUS (LACTOBACILLUS ACIDOPHILUS) [Concomitant]
  11. CELEBREX (CELECOXIB) [Concomitant]
  12. CLARITIN-D (LORATADINE, PSEUDOEPHEDRINE SULFATE) [Concomitant]
  13. ASCORBIC ACID (ASCORBIC ACID) [Concomitant]
  14. CENTRUM   /00554501/ (MINERALS NOS, VITAMINS NOS) [Concomitant]
  15. CALCIUM (CALCIUM) [Concomitant]
  16. VITAMIN D   /00318501/ (COLECALCIFEROL) [Concomitant]

REACTIONS (14)
  - Femur fracture [None]
  - Fall [None]
  - Device extrusion [None]
  - Fracture displacement [None]
  - Pathological fracture [None]
  - Atypical femur fracture [None]
  - Comminuted fracture [None]
  - Fracture nonunion [None]
  - Bone loss [None]
  - Low turnover osteopathy [None]
  - Pain [None]
  - Arthralgia [None]
  - Meniscus injury [None]
  - Stress fracture [None]
